FAERS Safety Report 5952981-2 (Version None)
Quarter: 2008Q4

REPORT INFORMATION
  Report Type: 
  Country: None (occurrence: None)
  Receive Date: 20081114
  Receipt Date: 20081103
  Transmission Date: 20090506
  Serious: Yes (Other)
  Sender: FDA-Public Use
  Company Number: US-AVENTIS-200817559US

PATIENT
  Sex: Male
  Weight: 63.18 kg

DRUGS (3)
  1. KETEK [Suspect]
     Route: 048
     Dates: start: 20051103
  2. KETEK [Suspect]
     Route: 048
     Dates: start: 20060202
  3. DOXYCYCLINE [Concomitant]
     Route: 048
     Dates: start: 20051230

REACTIONS (10)
  - ANTINUCLEAR ANTIBODY [None]
  - ARTHRALGIA [None]
  - BLOOD BILIRUBIN INCREASED [None]
  - FATIGUE [None]
  - HEPATITIS B [None]
  - HEPATITIS E ANTIGEN POSITIVE [None]
  - INTERNATIONAL NORMALISED RATIO INCREASED [None]
  - LIVER FUNCTION TEST ABNORMAL [None]
  - PLATELET COUNT DECREASED [None]
  - SPLENOMEGALY [None]
